FAERS Safety Report 5431272-2 (Version None)
Quarter: 2007Q3

REPORT INFORMATION
  Report Type: 
  Country: None (occurrence: None)
  Receive Date: 20070830
  Receipt Date: 20070815
  Transmission Date: 20080115
  Serious: Yes (Other)
  Sender: FDA-Public Use
  Company Number: US-GILEAD-2007-0013169

PATIENT
  Sex: Male

DRUGS (2)
  1. ATRIPLA [Suspect]
  2. GLIPIZIDE [Concomitant]

REACTIONS (1)
  - AGRANULOCYTOSIS [None]
